FAERS Safety Report 25598219 (Version 1)
Quarter: 2025Q3

REPORT INFORMATION
  Report Type: Report from Study
  Country: EU (occurrence: EU)
  Receive Date: 20250723
  Receipt Date: 20250723
  Transmission Date: 20251020
  Serious: Yes (Hospitalization)
  Sender: MYLAN
  Company Number: EU-MYLANLABS-2025M1057059

PATIENT
  Age: 39 Year
  Sex: Male
  Weight: 130 kg

DRUGS (56)
  1. CLOZAPINE [Suspect]
     Active Substance: CLOZAPINE
     Indication: Psychotic disorder
     Dosage: 400 MILLIGRAM, TID (100 MG + 200 MG + 100 MG)
     Route: 065
     Dates: start: 20241212, end: 202507
  2. CLOZAPINE [Suspect]
     Active Substance: CLOZAPINE
     Dosage: 400 MILLIGRAM, TID (100 MG + 200 MG + 100 MG)
     Dates: start: 20241212, end: 202507
  3. CLOZAPINE [Suspect]
     Active Substance: CLOZAPINE
     Dosage: 400 MILLIGRAM, TID (100 MG + 200 MG + 100 MG)
     Dates: start: 20241212, end: 202507
  4. CLOZAPINE [Suspect]
     Active Substance: CLOZAPINE
     Dosage: 400 MILLIGRAM, TID (100 MG + 200 MG + 100 MG)
     Route: 065
     Dates: start: 20241212, end: 202507
  5. CLOZAPINE [Suspect]
     Active Substance: CLOZAPINE
     Route: 065
  6. CLOZAPINE [Suspect]
     Active Substance: CLOZAPINE
  7. CLOZAPINE [Suspect]
     Active Substance: CLOZAPINE
  8. CLOZAPINE [Suspect]
     Active Substance: CLOZAPINE
     Route: 065
  9. LEVOMEPROMAZINE MALEATE [Concomitant]
     Active Substance: LEVOMEPROMAZINE MALEATE
     Indication: Psychotic disorder
     Dosage: 50 MILLIGRAM, TID (2X3 (2 DOSAGE FORMS 3 TIMES DAILY))
  10. LEVOMEPROMAZINE MALEATE [Concomitant]
     Active Substance: LEVOMEPROMAZINE MALEATE
     Dosage: 50 MILLIGRAM, TID (2X3 (2 DOSAGE FORMS 3 TIMES DAILY))
     Route: 065
  11. LEVOMEPROMAZINE MALEATE [Concomitant]
     Active Substance: LEVOMEPROMAZINE MALEATE
     Dosage: 50 MILLIGRAM, TID (2X3 (2 DOSAGE FORMS 3 TIMES DAILY))
     Route: 065
  12. LEVOMEPROMAZINE MALEATE [Concomitant]
     Active Substance: LEVOMEPROMAZINE MALEATE
     Dosage: 50 MILLIGRAM, TID (2X3 (2 DOSAGE FORMS 3 TIMES DAILY))
  13. Vi-siblin [Concomitant]
  14. Vi-siblin [Concomitant]
     Route: 065
  15. Vi-siblin [Concomitant]
     Route: 065
  16. Vi-siblin [Concomitant]
  17. BISOPROLOL [Concomitant]
     Active Substance: BISOPROLOL
     Dosage: 2.5 MILLIGRAM, BID (1 TABLET X 2, IN THE MORNING AND IN THE EVENING)
  18. BISOPROLOL [Concomitant]
     Active Substance: BISOPROLOL
     Dosage: 2.5 MILLIGRAM, BID (1 TABLET X 2, IN THE MORNING AND IN THE EVENING)
     Route: 065
  19. BISOPROLOL [Concomitant]
     Active Substance: BISOPROLOL
     Dosage: 2.5 MILLIGRAM, BID (1 TABLET X 2, IN THE MORNING AND IN THE EVENING)
     Route: 065
  20. BISOPROLOL [Concomitant]
     Active Substance: BISOPROLOL
     Dosage: 2.5 MILLIGRAM, BID (1 TABLET X 2, IN THE MORNING AND IN THE EVENING)
  21. Lorazepam orion [Concomitant]
     Dosage: UNK, TID (0.5 TABLET PLUS 1 TABLET PLUS 0.5 TABLET EVERY DAY)
  22. Lorazepam orion [Concomitant]
     Dosage: UNK, TID (0.5 TABLET PLUS 1 TABLET PLUS 0.5 TABLET EVERY DAY)
     Route: 065
  23. Lorazepam orion [Concomitant]
     Dosage: UNK, TID (0.5 TABLET PLUS 1 TABLET PLUS 0.5 TABLET EVERY DAY)
     Route: 065
  24. Lorazepam orion [Concomitant]
     Dosage: UNK, TID (0.5 TABLET PLUS 1 TABLET PLUS 0.5 TABLET EVERY DAY)
  25. Multivita [Concomitant]
     Dosage: 1 DOSAGE FORM, QD (1 TABLET ONCE A DAY)
  26. Multivita [Concomitant]
     Dosage: 1 DOSAGE FORM, QD (1 TABLET ONCE A DAY)
     Route: 065
  27. Multivita [Concomitant]
     Dosage: 1 DOSAGE FORM, QD (1 TABLET ONCE A DAY)
     Route: 065
  28. Multivita [Concomitant]
     Dosage: 1 DOSAGE FORM, QD (1 TABLET ONCE A DAY)
  29. OMEPRAZOLE [Concomitant]
     Active Substance: OMEPRAZOLE
     Dosage: 40 MILLIGRAM, QD
  30. OMEPRAZOLE [Concomitant]
     Active Substance: OMEPRAZOLE
     Dosage: 40 MILLIGRAM, QD
     Route: 065
  31. OMEPRAZOLE [Concomitant]
     Active Substance: OMEPRAZOLE
     Dosage: 40 MILLIGRAM, QD
     Route: 065
  32. OMEPRAZOLE [Concomitant]
     Active Substance: OMEPRAZOLE
     Dosage: 40 MILLIGRAM, QD
  33. SERTRALINE [Concomitant]
     Active Substance: SERTRALINE HYDROCHLORIDE
     Dosage: 200 MILLIGRAM, QD (2 TABLETS X1)
  34. SERTRALINE [Concomitant]
     Active Substance: SERTRALINE HYDROCHLORIDE
     Dosage: 200 MILLIGRAM, QD (2 TABLETS X1)
     Route: 065
  35. SERTRALINE [Concomitant]
     Active Substance: SERTRALINE HYDROCHLORIDE
     Dosage: 200 MILLIGRAM, QD (2 TABLETS X1)
     Route: 065
  36. SERTRALINE [Concomitant]
     Active Substance: SERTRALINE HYDROCHLORIDE
     Dosage: 200 MILLIGRAM, QD (2 TABLETS X1)
  37. FLUTICASONE FUROATE [Concomitant]
     Active Substance: FLUTICASONE FUROATE
  38. FLUTICASONE FUROATE [Concomitant]
     Active Substance: FLUTICASONE FUROATE
     Route: 065
  39. FLUTICASONE FUROATE [Concomitant]
     Active Substance: FLUTICASONE FUROATE
     Route: 065
  40. FLUTICASONE FUROATE [Concomitant]
     Active Substance: FLUTICASONE FUROATE
  41. CETIRIZINE HYDROCHLORIDE [Concomitant]
     Active Substance: CETIRIZINE HYDROCHLORIDE
  42. CETIRIZINE HYDROCHLORIDE [Concomitant]
     Active Substance: CETIRIZINE HYDROCHLORIDE
     Route: 065
  43. CETIRIZINE HYDROCHLORIDE [Concomitant]
     Active Substance: CETIRIZINE HYDROCHLORIDE
     Route: 065
  44. CETIRIZINE HYDROCHLORIDE [Concomitant]
     Active Substance: CETIRIZINE HYDROCHLORIDE
  45. SODIUM PICOSULFATE [Concomitant]
     Active Substance: SODIUM PICOSULFATE
  46. SODIUM PICOSULFATE [Concomitant]
     Active Substance: SODIUM PICOSULFATE
     Route: 065
  47. SODIUM PICOSULFATE [Concomitant]
     Active Substance: SODIUM PICOSULFATE
     Route: 065
  48. SODIUM PICOSULFATE [Concomitant]
     Active Substance: SODIUM PICOSULFATE
  49. ACETAMINOPHEN [Concomitant]
     Active Substance: ACETAMINOPHEN
  50. ACETAMINOPHEN [Concomitant]
     Active Substance: ACETAMINOPHEN
     Route: 065
  51. ACETAMINOPHEN [Concomitant]
     Active Substance: ACETAMINOPHEN
     Route: 065
  52. ACETAMINOPHEN [Concomitant]
     Active Substance: ACETAMINOPHEN
  53. ALBUTEROL [Concomitant]
     Active Substance: ALBUTEROL
  54. ALBUTEROL [Concomitant]
     Active Substance: ALBUTEROL
     Route: 055
  55. ALBUTEROL [Concomitant]
     Active Substance: ALBUTEROL
     Route: 055
  56. ALBUTEROL [Concomitant]
     Active Substance: ALBUTEROL

REACTIONS (9)
  - Infection [Unknown]
  - Abdominal pain [Recovering/Resolving]
  - Decreased appetite [Not Recovered/Not Resolved]
  - Diarrhoea [Not Recovered/Not Resolved]
  - Pyrexia [Recovered/Resolved]
  - C-reactive protein increased [Unknown]
  - Vomiting [Recovered/Resolved]
  - Hepatic steatosis [Unknown]
  - Off label use [Not Recovered/Not Resolved]

NARRATIVE: CASE EVENT DATE: 20250101
